FAERS Safety Report 5657228-2 (Version None)
Quarter: 2008Q1

REPORT INFORMATION
  Report Type: 
  Country: None (occurrence: None)
  Receive Date: 20080310
  Receipt Date: 20080228
  Transmission Date: 20080703
  Serious: Yes (Hospitalization)
  Sender: FDA-Public Use
  Company Number: JP-ASTRAZENECA-2008AP01545

PATIENT
  Age: 54 Year
  Sex: Male

DRUGS (4)
  1. CRESTOR [Suspect]
     Indication: LOW DENSITY LIPOPROTEIN INCREASED
     Route: 048
     Dates: start: 20071228, end: 20080125
  2. CYANOCOBALAMIN [Concomitant]
     Indication: DIABETES MELLITUS
     Route: 048
  3. PENFILL R [Concomitant]
     Indication: DIABETES MELLITUS
     Dosage: FREQUENCY UNKNOWN
     Route: 058
  4. LEVEMIR300 [Concomitant]
     Indication: DIABETES MELLITUS
     Dosage: FREQUENCY UNKNOWN
     Route: 058

REACTIONS (2)
  - BLOOD CREATINE PHOSPHOKINASE INCREASED [None]
  - BLOOD CREATININE INCREASED [None]
